FAERS Safety Report 24822928 (Version 1)
Quarter: 2025Q1

REPORT INFORMATION
  Report Type: Report from Study
  Country: GB (occurrence: GB)
  Receive Date: 20250109
  Receipt Date: 20250109
  Transmission Date: 20250409
  Serious: Yes (Other)
  Sender: ABBVIE
  Company Number: GB-ABBVIE-6075479

PATIENT
  Age: 28 Year
  Sex: Female

DRUGS (1)
  1. RINVOQ [Suspect]
     Active Substance: UPADACITINIB
     Indication: Dermatitis atopic
     Dosage: STRENGTH- 30MG MODIFIED-RELEASE TABLETS 28 TABLET 4 X 7 TABLETS
     Route: 048
     Dates: start: 20240618, end: 20241225

REACTIONS (2)
  - Surgery [Unknown]
  - Eczema [Unknown]

NARRATIVE: CASE EVENT DATE: 20240101
